FAERS Safety Report 8209656-9 (Version None)
Quarter: 2012Q1

REPORT INFORMATION
  Report Type: 
  Country: None (occurrence: None)
  Receive Date: 20120314
  Receipt Date: 20120312
  Transmission Date: 20120608
  Serious: Yes (Hospitalization)
  Sender: FDA-Public Use
  Company Number: US-PFIZER INC-2012056338

PATIENT
  Sex: Female
  Weight: 87.528 kg

DRUGS (5)
  1. CHANTIX [Suspect]
     Indication: SMOKING CESSATION THERAPY
     Dosage: 0.5 MG, 1X/DAY
     Route: 048
     Dates: start: 20120226, end: 20120301
  2. NEURONTIN [Suspect]
     Dosage: UNK
  3. METHADONE [Concomitant]
     Indication: PAIN
     Dosage: UNK
  4. NEURONTIN [Suspect]
     Indication: PAIN
     Dosage: UNK, 4X/DAY
     Dates: start: 20100101
  5. MORPHINE [Concomitant]
     Indication: PAIN
     Dosage: UNK

REACTIONS (6)
  - FATIGUE [None]
  - NECK PAIN [None]
  - CHEST PAIN [None]
  - PAIN IN JAW [None]
  - PAIN IN EXTREMITY [None]
  - BACK PAIN [None]
